FAERS Safety Report 17520379 (Version 1)
Quarter: 2020Q1

REPORT INFORMATION
  Report Type: Spontaneous
  Country: US (occurrence: US)
  Receive Date: 20200302
  Receipt Date: 20200302
  Transmission Date: 20200409
  Serious: Yes (Hospitalization)
  Sender: FDA-Public Use
  Company Number: None

PATIENT
  Age: 78 Year
  Sex: Male
  Weight: 76 kg

DRUGS (1)
  1. HYDROCHLOROTHIAZIDE (HYDROCHLOROTHIAZIDE 25MG TAB) [Suspect]
     Active Substance: HYDROCHLOROTHIAZIDE
     Indication: HYPERTENSION
     Route: 048
     Dates: start: 20200214, end: 20200224

REACTIONS (7)
  - Malaise [None]
  - Nausea [None]
  - Hypokalaemia [None]
  - Hyponatraemia [None]
  - Vomiting [None]
  - Treatment noncompliance [None]
  - Asthenia [None]

NARRATIVE: CASE EVENT DATE: 20200224
